FAERS Safety Report 25829999 (Version 4)
Quarter: 2025Q4

REPORT INFORMATION
  Report Type: Spontaneous
  Country: US (occurrence: US)
  Receive Date: 20250922
  Receipt Date: 20251011
  Transmission Date: 20260118
  Serious: Yes (Hospitalization, Other)
  Sender: ADVANZ PHARMA
  Company Number: US-MLMSERVICE-20250904-PI632142-00095-1

PATIENT

DRUGS (2)
  1. HYDROXYCHLOROQUINE [Suspect]
     Active Substance: HYDROXYCHLOROQUINE
     Indication: Rheumatoid arthritis
     Dosage: UNK
  2. PREDNISONE [Suspect]
     Active Substance: PREDNISONE
     Indication: Rheumatoid arthritis
     Dosage: LOW-DOSE

REACTIONS (12)
  - Dysphonia [Recovering/Resolving]
  - Muscular weakness [Recovering/Resolving]
  - Pneumonia [Unknown]
  - Weight decreased [Recovering/Resolving]
  - Muscle atrophy [Recovering/Resolving]
  - Myopathy [Recovering/Resolving]
  - Asthenia [Recovering/Resolving]
  - Dysarthria [Recovering/Resolving]
  - Cough [Recovering/Resolving]
  - Hypervolaemia [Recovering/Resolving]
  - Respiratory disorder [Unknown]
  - Cardiac failure [Recovering/Resolving]
